FAERS Safety Report 4483678-6 (Version None)
Quarter: 2004Q4

REPORT INFORMATION
  Report Type: 
  Country: None (occurrence: None)
  Receive Date: 20041022
  Receipt Date: 20041022
  Transmission Date: 20050328
  Serious: No
  Sender: FDA-Public Use
  Company Number: None

PATIENT
  Age: 70 Year
  Sex: Male

DRUGS (1)
  1. CYPHER SIROLIMUS-ELUTING CORONARY STENT 3.50MM X 33MM [Suspect]

REACTIONS (1)
  - MEDICAL DEVICE COMPLICATION [None]
